FAERS Safety Report 14926990 (Version 2)
Quarter: 2018Q2

REPORT INFORMATION
  Report Type: Spontaneous
  Country: US (occurrence: US)
  Receive Date: 20180523
  Receipt Date: 20180613
  Transmission Date: 20180711
  Serious: No
  Sender: FDA-Public Use
  Company Number: US-BRISTOL-MYERS SQUIBB COMPANY-BMS-2018-047025

PATIENT
  Sex: Male

DRUGS (1)
  1. ELIQUIS [Suspect]
     Active Substance: APIXABAN
     Indication: EMBOLISM VENOUS
     Dosage: 5 MG, BID
     Route: 048

REACTIONS (7)
  - Malaise [Unknown]
  - Dyspnoea [Unknown]
  - Temperature intolerance [Unknown]
  - Prescribed underdose [Unknown]
  - Dizziness [Unknown]
  - Feeling abnormal [Unknown]
  - Infection [Unknown]
